FAERS Safety Report 10946521 (Version 1)
Quarter: 2015Q1

REPORT INFORMATION
  Report Type: Spontaneous
  Country: US (occurrence: None)
  Receive Date: 20150212
  Receipt Date: 20150212
  Transmission Date: 20150721
  Serious: Yes (Hospitalization)
  Sender: FDA-Public Use
  Company Number: TPA2012A04234

PATIENT

DRUGS (4)
  1. LISINOPRIL. [Concomitant]
     Active Substance: LISINOPRIL
  2. COLCRYS [Concomitant]
     Active Substance: COLCHICINE
  3. INDOMETHACIN (INDOMETACIN) [Concomitant]
     Active Substance: INDOMETHACIN
  4. ULORIC [Suspect]
     Active Substance: FEBUXOSTAT

REACTIONS (1)
  - Feeling abnormal [None]
